FAERS Safety Report 8453046-0 (Version None)
Quarter: 2012Q2

REPORT INFORMATION
  Report Type: 
  Country: None (occurrence: None)
  Receive Date: 20120620
  Receipt Date: 20120615
  Transmission Date: 20120825
  Serious: Yes (Other)
  Sender: FDA-Public Use
  Company Number: PHHY2012JP051479

PATIENT
  Age: 67 Year
  Sex: Female

DRUGS (7)
  1. VINCRISTINE [Suspect]
     Indication: OCULAR NEOPLASM
     Dosage: 1.4 MG/M2, (MAXIMUM 2 MG)
  2. RADIATION THERAPY [Concomitant]
     Indication: OCULAR NEOPLASM
  3. PROCARBAZINE HYDROCHLORIDE [Suspect]
     Indication: OCULAR NEOPLASM
     Dosage: 100 MG/M2, UNK
  4. METHOTREXATE [Suspect]
     Dosage: 3.5 G/M2
  5. METHOTREXATE [Suspect]
     Indication: OCULAR NEOPLASM
     Dosage: 400 UG ONCE A WEEK FOR 2 MONTHS, FOLLOWED BY MONTHLY INJECTION FOR 2 MONTHS
  6. RADIOTHERAPY [Concomitant]
     Indication: OCULAR NEOPLASM
     Dosage: 23.4 GY (1.8 GY/FRACTION X 13 DAILY)
  7. RITUXIMAB [Suspect]
     Indication: OCULAR NEOPLASM
     Dosage: 375 MG/M2, UNK

REACTIONS (3)
  - NEUTROPENIA [None]
  - NEUROPATHY PERIPHERAL [None]
  - CATARACT [None]
